FAERS Safety Report 21532319 (Version 1)
Quarter: 2022Q4

REPORT INFORMATION
  Report Type: Report from Study
  Country: US (occurrence: US)
  Receive Date: 20221101
  Receipt Date: 20221101
  Transmission Date: 20230113
  Serious: No
  Sender: FDA-Public Use
  Company Number: US-ABBVIE-4132824

PATIENT
  Sex: Female

DRUGS (4)
  1. HUMIRA [Suspect]
     Active Substance: ADALIMUMAB
     Indication: Arthritis
     Route: 058
     Dates: start: 20220831
  2. HUMIRA [Suspect]
     Active Substance: ADALIMUMAB
     Indication: Spondyloarthropathy
  3. Moderna [Concomitant]
     Indication: COVID-19 immunisation
     Dosage: BOOSTER DOSE?1 IN ONCE
     Route: 030
  4. Moderna [Concomitant]
     Indication: COVID-19 immunisation
     Dosage: 1 IN ONCE
     Route: 030

REACTIONS (3)
  - Off label use [Unknown]
  - Injection site haemorrhage [Recovered/Resolved]
  - Incorrect dose administered [Unknown]
